FAERS Safety Report 8406518-9 (Version None)
Quarter: 2012Q2

REPORT INFORMATION
  Report Type: 
  Country: None (occurrence: None)
  Receive Date: 20120604
  Receipt Date: 20120530
  Transmission Date: 20120825
  Serious: No
  Sender: FDA-Public Use
  Company Number: US-PFIZER INC-2012130655

PATIENT
  Weight: 110 kg

DRUGS (10)
  1. ACETYLSALICYLIC ACID SRT [Suspect]
     Dosage: 81 MG, 1X/DAY
     Route: 048
  2. VITAMIN B1 TAB [Suspect]
     Dosage: UNK
     Route: 048
  3. ZOCOR [Suspect]
     Dosage: 80 MG, EVERY EVENING
     Route: 048
  4. WARFARIN SODIUM [Suspect]
     Dosage: AS INSTRUCTED
     Route: 048
  5. OMEPRAZOLE [Suspect]
     Dosage: 20 MG, DAILY
     Route: 048
  6. VASOTEC [Suspect]
     Dosage: 5 MG, 2X/DAY
     Route: 048
  7. TOPROL-XL [Suspect]
     Dosage: 50 MG, 2X/DAY
     Route: 048
  8. COLCHICINE [Suspect]
     Dosage: 0.6 MG, 2X/DAY
     Route: 048
  9. TIKOSYN [Suspect]
     Indication: ARRHYTHMIA
     Dosage: 250 UG, 2X/DAY
     Route: 048
  10. VITAMIN B-12 [Suspect]
     Dosage: UNK
     Route: 048

REACTIONS (3)
  - NAUSEA [None]
  - DIZZINESS [None]
  - GASTROENTERITIS VIRAL [None]
